FAERS Safety Report 23066091 (Version 2)
Quarter: 2023Q4

REPORT INFORMATION
  Report Type: Spontaneous
  Country: US (occurrence: US)
  Receive Date: 20231014
  Receipt Date: 20231103
  Transmission Date: 20240110
  Serious: Yes (Other)
  Sender: FDA-Public Use
  Company Number: US-JNJFOC-20231023604

PATIENT
  Age: 8 Decade
  Sex: Female

DRUGS (1)
  1. ELMIRON [Suspect]
     Active Substance: PENTOSAN POLYSULFATE SODIUM
     Indication: Cystitis interstitial
     Dosage: VARYING DOSES AND FREQUENCIES OF 100 MG, 200 MG AND 300 MG AND THREE TIMES DAILY AND TWO TIMES DAILY
     Route: 048
     Dates: start: 1996, end: 2021

REACTIONS (4)
  - Renal injury [Unknown]
  - Retinal depigmentation [Not Recovered/Not Resolved]
  - Toxicity to various agents [Unknown]
  - Off label use [Unknown]

NARRATIVE: CASE EVENT DATE: 20150101
